FAERS Safety Report 8337819-0 (Version None)
Quarter: 2012Q2

REPORT INFORMATION
  Report Type: 
  Country: None (occurrence: None)
  Receive Date: 20120504
  Receipt Date: 20120501
  Transmission Date: 20120825
  Serious: Yes (Other)
  Sender: FDA-Public Use
  Company Number: DE-GLAXOSMITHKLINE-D0075450A

PATIENT
  Sex: Female

DRUGS (6)
  1. PROMETHAZINE HCL [Suspect]
     Dosage: 25MG SEE DOSAGE TEXT
     Route: 048
     Dates: start: 20120501, end: 20120501
  2. VALIUM [Suspect]
     Dosage: 10MG SEE DOSAGE TEXT
     Route: 048
     Dates: start: 20120501, end: 20120501
  3. ACETAMINOPHEN [Suspect]
     Dosage: 500MG SEE DOSAGE TEXT
     Route: 048
     Dates: start: 20120501, end: 20120501
  4. LAMICTAL [Suspect]
     Dosage: 50MG SEE DOSAGE TEXT
     Route: 048
     Dates: start: 20120501, end: 20120501
  5. TRAMADOL HCL [Suspect]
     Dosage: 100MG SEE DOSAGE TEXT
     Route: 048
     Dates: start: 20120501, end: 20120501
  6. ACTRAPID [Suspect]
     Dosage: 1AMP SINGLE DOSE
     Route: 058
     Dates: start: 20120501, end: 20120501

REACTIONS (3)
  - SUICIDE ATTEMPT [None]
  - SOPOR [None]
  - INTENTIONAL OVERDOSE [None]
